FAERS Safety Report 4849367-0 (Version None)
Quarter: 2005Q4

REPORT INFORMATION
  Report Type: 
  Country: None (occurrence: None)
  Receive Date: 20051207
  Receipt Date: 20051128
  Transmission Date: 20060501
  Serious: Yes (Hospitalization, Other)
  Sender: FDA-Public Use
  Company Number: KII-2005-0019908

PATIENT
  Age: 32 Year
  Sex: Male

DRUGS (10)
  1. MORPHINE SULFATE [Suspect]
     Dosage: ORAL
     Route: 048
  2. ETHANOL (ETHANOL) [Suspect]
     Dosage: ORAL
     Route: 048
  3. XANAX [Suspect]
     Dosage: ORAL
     Route: 048
  4. PHENOBARBITAL TAB [Suspect]
     Indication: DRUG WITHDRAWAL SYNDROME
     Dosage: ORAL
     Route: 048
  5. BENZODIAZEPINE DERIVATIVES() [Suspect]
     Dosage: ORAL
     Route: 048
  6. ACETAMINOPHEN [Suspect]
  7. GASTROINTESTINAL PREPARATION () [Suspect]
  8. IBUPROFEN [Suspect]
  9. ANTIHISTAMINES FOR SYSTEMIC USE() [Suspect]
  10. BETA BLOCKING AGENTS () [Suspect]

REACTIONS (20)
  - ASPIRATION [None]
  - BLOOD CREATINE PHOSPHOKINASE ABNORMAL [None]
  - BODY TEMPERATURE INCREASED [None]
  - DRUG TOXICITY [None]
  - DYSARTHRIA [None]
  - ELECTROCARDIOGRAM T WAVE INVERSION [None]
  - ELECTROENCEPHALOGRAM ABNORMAL [None]
  - HALLUCINATION, VISUAL [None]
  - LETHARGY [None]
  - MUSCLE RIGIDITY [None]
  - MUSCLE TWITCHING [None]
  - MUSCULOSKELETAL STIFFNESS [None]
  - MYOCLONUS [None]
  - OVERDOSE [None]
  - SPEECH DISORDER [None]
  - SYNCOPE [None]
  - TACHYCARDIA [None]
  - TREMOR [None]
  - VOMITING [None]
  - WHITE BLOOD CELL COUNT ABNORMAL [None]
